FAERS Safety Report 7511247-X (Version None)
Quarter: 2011Q2

REPORT INFORMATION
  Report Type: 
  Country: None (occurrence: None)
  Receive Date: 20110531
  Receipt Date: 20110124
  Transmission Date: 20111010
  Serious: Yes (Other)
  Sender: FDA-Public Use
  Company Number: US-BAYER-201022289NA

PATIENT
  Sex: Female
  Weight: 68.027 kg

DRUGS (10)
  1. PENICILLIN VK [Concomitant]
     Dosage: 500 MG, UNK
     Route: 048
     Dates: start: 20080827
  2. SERTRALINE HYDROCHLORIDE [Concomitant]
     Dosage: 50 MG, UNK
     Route: 048
     Dates: start: 20070702
  3. HYDROXYZINE HCL [Concomitant]
     Dosage: 25 MG, UNK
     Route: 048
  4. CELEXA [Concomitant]
     Dosage: UNK
     Dates: start: 20040625
  5. YASMIN [Suspect]
     Indication: ORAL CONTRACEPTION
     Dosage: UNK
     Route: 048
     Dates: start: 20040601, end: 20080901
  6. CITALOPRAM HYDROBROMIDE [Concomitant]
     Dosage: 40 MG, UNK
     Dates: start: 20080716, end: 20080929
  7. ADVIL LIQUI-GELS [Suspect]
     Dosage: UNK
     Dates: start: 20040625
  8. YAZ [Suspect]
     Indication: ORAL CONTRACEPTION
     Route: 048
     Dates: start: 20040101, end: 20080901
  9. VIGAMOX [Concomitant]
     Dosage: 0.5 %, UNK
     Route: 047
     Dates: start: 20070803
  10. HYDROCODONE BITARTRATE AND ACETAMINOPHEN [Concomitant]
     Dosage: 5 MG, PRN
     Dates: start: 20080827

REACTIONS (2)
  - ABDOMINAL PAIN UPPER [None]
  - GALLBLADDER DISORDER [None]
